FAERS Safety Report 5474391-7 (Version None)
Quarter: 2007Q4

REPORT INFORMATION
  Report Type: 
  Country: None (occurrence: None)
  Receive Date: 20071002
  Receipt Date: 20070921
  Transmission Date: 20080405
  Serious: Yes (Disabling, Other)
  Sender: FDA-Public Use
  Company Number: TR-AVENTIS-200718769GDDC

PATIENT
  Age: 75 Year
  Sex: Female
  Weight: 75 kg

DRUGS (9)
  1. ARAVA [Suspect]
     Dosage: DOSE: 1 TABLET
     Route: 048
     Dates: start: 20070301, end: 20070701
  2. CALCIUM WITH VITAMIN D             /01233101/ [Concomitant]
     Dosage: DOSE: 1 TABLET
     Route: 048
  3. FOSAMAX [Concomitant]
     Dosage: DOSE: 1 TABLET
     Route: 048
  4. DELTACORTRIL                       /00016201/ [Concomitant]
     Dosage: DOSE: 1 TABLET
     Route: 048
  5. TENSINOR [Concomitant]
     Indication: HYPERTENSION
     Dosage: DOSE: 1 TABLET
     Route: 048
  6. COZAAR [Concomitant]
     Indication: HYPERTENSION
     Dosage: DOSE: 1 TABLET
     Route: 048
  7. DIAMICRON [Concomitant]
     Dosage: DOSE: 1 TABLET
     Route: 048
  8. PROSEK [Concomitant]
     Dosage: DOSE: 1 TABLET
     Route: 048
  9. HYZAAR [Concomitant]
     Dosage: DOSE: 1 TABLET 50/12.5 MG
     Route: 048

REACTIONS (3)
  - OFF LABEL USE [None]
  - PRURITUS [None]
  - WOUND [None]
